FAERS Safety Report 7093596-5 (Version None)
Quarter: 2010Q4

REPORT INFORMATION
  Report Type: 
  Country: None (occurrence: None)
  Receive Date: 20101110
  Receipt Date: 20101108
  Transmission Date: 20110411
  Serious: Yes (Hospitalization)
  Sender: FDA-Public Use
  Company Number: IT-ROCHE-735000

PATIENT
  Sex: Female

DRUGS (1)
  1. ROCEPHIN [Suspect]
     Dosage: FREQUENCY: TOTAL
     Route: 051
     Dates: start: 20101001, end: 20101001

REACTIONS (2)
  - BLOOD PRESSURE DECREASED [None]
  - DYSPNOEA [None]
